FAERS Safety Report 15726098 (Version 1)
Quarter: 2018Q4

REPORT INFORMATION
  Report Type: Spontaneous
  Country: US (occurrence: US)
  Receive Date: 20181216
  Receipt Date: 20181216
  Transmission Date: 20190205
  Serious: No
  Sender: FDA-Public Use
  Company Number: US-SUPERNUS PHARMACEUTICALS, INC.-2018SUP00297

PATIENT
  Sex: Female
  Weight: 54.42 kg

DRUGS (8)
  1. ALLEGRA [Concomitant]
     Active Substance: FEXOFENADINE HYDROCHLORIDE
     Dosage: UNK, AS NEEDED
  2. UNSPECIFIED NASAL SPRAY [Concomitant]
     Active Substance: UNSPECIFIED INGREDIENT
     Dosage: UNK, AS NEEDED
  3. TROKENDI XR [Suspect]
     Active Substance: TOPIRAMATE
     Indication: MIGRAINE
     Dosage: 50 MG, 1X/DAY
     Route: 048
  4. HCTZ [Concomitant]
     Active Substance: HYDROCHLOROTHIAZIDE
     Indication: BLOOD PRESSURE DIASTOLIC INCREASED
     Dosage: 10 MG, 1X/DAY
  5. SINGULAIR [Concomitant]
     Active Substance: MONTELUKAST SODIUM
     Indication: HYPERSENSITIVITY
     Dosage: 10 MG, 1X/DAY
  6. FIORICET [Concomitant]
     Active Substance: ACETAMINOPHEN\BUTALBITAL\CAFFEINE
     Indication: TENSION HEADACHE
     Dosage: UNK, AS NEEDED FOR TENSION HEADAHCES
  7. TROKENDI XR [Suspect]
     Active Substance: TOPIRAMATE
     Dosage: 100 MG, 1X/DAY
     Route: 048
     Dates: start: 201807, end: 2018
  8. TROKENDI XR [Suspect]
     Active Substance: TOPIRAMATE
     Dosage: 50 MG, 2X/DAY
     Route: 048
     Dates: start: 201808

REACTIONS (11)
  - Paraesthesia oral [Recovered/Resolved]
  - Paraesthesia [Recovered/Resolved]
  - Hormone level abnormal [Not Recovered/Not Resolved]
  - Drug ineffective [Unknown]
  - Speech disorder [Recovered/Resolved]
  - Hypoaesthesia oral [Recovered/Resolved]
  - Headache [Recovering/Resolving]
  - Hypoaesthesia [Recovered/Resolved]
  - Sinus disorder [Unknown]
  - Swollen tongue [Recovered/Resolved]
  - Migraine [Recovering/Resolving]

NARRATIVE: CASE EVENT DATE: 2018
